FAERS Safety Report 7042199-7 (Version None)
Quarter: 2010Q4

REPORT INFORMATION
  Report Type: 
  Country: None (occurrence: None)
  Receive Date: 20101007
  Receipt Date: 20100922
  Transmission Date: 20110411
  Serious: Yes (Death)
  Sender: FDA-Public Use
  Company Number: AUR-APU-2010-02444

PATIENT
  Age: 37 Year

DRUGS (4)
  1. VENLAFAXINE [Suspect]
  2. CLOZAPINE [Suspect]
     Dosage: 600MG, DAILY
  3. CLOZAPINE [Suspect]
     Dosage: 450MG
  4. DIHYDROCODEINE BITARTRATE INJ [Suspect]

REACTIONS (7)
  - ABDOMINAL PAIN UPPER [None]
  - DIARRHOEA [None]
  - DRUG TOXICITY [None]
  - HEPATIC FAILURE [None]
  - HEPATIC NECROSIS [None]
  - HEPATIC STEATOSIS [None]
  - SOMNOLENCE [None]
